FAERS Safety Report 14926963 (Version 2)
Quarter: 2018Q2

REPORT INFORMATION
  Report Type: Spontaneous
  Country: US (occurrence: US)
  Receive Date: 20180523
  Receipt Date: 20180524
  Transmission Date: 20180711
  Serious: No
  Sender: FDA-Public Use
  Company Number: US-TEVA-2018-US-893763

PATIENT
  Sex: Female

DRUGS (4)
  1. CARVEDILOL. [Suspect]
     Active Substance: CARVEDILOL
     Dosage: 6.25 MILLIGRAM DAILY;
     Dates: start: 20180509
  2. CARVEDILOL. [Suspect]
     Active Substance: CARVEDILOL
     Indication: BLOOD PRESSURE MEASUREMENT
     Dosage: 12.5 MILLIGRAM DAILY;
     Dates: start: 2009, end: 2018
  3. CARVEDILOL. [Suspect]
     Active Substance: CARVEDILOL
     Dosage: 12.5 MILLIGRAM DAILY;
     Dates: start: 2018, end: 20180508
  4. CARVEDILOL. [Suspect]
     Active Substance: CARVEDILOL
     Dosage: 25 MILLIGRAM DAILY;
     Dates: start: 2018

REACTIONS (8)
  - Blood pressure increased [Unknown]
  - Swollen tongue [Not Recovered/Not Resolved]
  - Wrong technique in product usage process [Unknown]
  - Movement disorder [Unknown]
  - Peripheral swelling [Recovering/Resolving]
  - Incorrect dose administered [Unknown]
  - Drug dispensing error [Unknown]
  - Gait disturbance [Unknown]

NARRATIVE: CASE EVENT DATE: 2009
